FAERS Safety Report 5869571-2 (Version None)
Quarter: 2008Q3

REPORT INFORMATION
  Report Type: 
  Country: None (occurrence: None)
  Receive Date: 20080828
  Receipt Date: 20080818
  Transmission Date: 20090109
  Serious: Yes (Hospitalization, Other)
  Sender: FDA-Public Use
  Company Number: 2008-02459

PATIENT
  Age: 84 Year
  Weight: 73 kg

DRUGS (5)
  1. VELCADE [Suspect]
     Indication: MULTIPLE MYELOMA
     Dosage: 2.6 MG
     Dates: start: 20080602, end: 20080613
  2. DEXAMETHASONE TAB [Suspect]
     Indication: DRUG USE FOR UNKNOWN INDICATION
     Dosage: 2.20 MG
  3. CALCICHEW (CALCIUM CARBONATE) [Concomitant]
  4. ACYCLOVIR [Concomitant]
  5. OMEPRAZOLE [Concomitant]

REACTIONS (4)
  - CONDITION AGGRAVATED [None]
  - GASTROINTESTINAL HAEMORRHAGE [None]
  - OESOPHAGITIS [None]
  - RENAL FAILURE CHRONIC [None]
